FAERS Safety Report 6228294-0 (Version None)
Quarter: 2009Q2

REPORT INFORMATION
  Report Type: 
  Country: None (occurrence: None)
  Receive Date: 20090612
  Receipt Date: 20090609
  Transmission Date: 20091009
  Serious: Yes (Life-Threatening)
  Sender: FDA-Public Use
  Company Number: PHHO2009CH02983

PATIENT
  Sex: Female

DRUGS (5)
  1. RAD 666 RAD+TAB [Suspect]
     Indication: MANTLE CELL LYMPHOMA
     Dosage: 10MG/DAILY
     Route: 048
     Dates: start: 20081105, end: 20081230
  2. RAD 666 RAD+TAB [Suspect]
     Dosage: 5MG/DAILY
     Route: 048
     Dates: start: 20081230, end: 20090223
  3. COUMADIN [Suspect]
     Dosage: UNK
     Dates: start: 20081231
  4. MYCOSTATIN [Concomitant]
     Dosage: UNK
     Dates: start: 20090119
  5. ANTINEOPLASTIC AGENTS [Concomitant]

REACTIONS (5)
  - ABDOMINAL PAIN [None]
  - ANAEMIA [None]
  - DIARRHOEA [None]
  - DRUG INTERACTION [None]
  - VOMITING [None]
